FAERS Safety Report 22344880 (Version 1)
Quarter: 2023Q2

REPORT INFORMATION
  Report Type: Spontaneous
  Country: US (occurrence: US)
  Receive Date: 20230519
  Receipt Date: 20230519
  Transmission Date: 20230722
  Serious: No
  Sender: FDA-Public Use
  Company Number: US-INCYTE CORPORATION-2023IN004833

PATIENT

DRUGS (1)
  1. JAKAFI [Suspect]
     Active Substance: RUXOLITINIB
     Indication: Blood disorder
     Dosage: 20 MILLIGRAM, BID
     Route: 065
     Dates: end: 202305

REACTIONS (4)
  - Haemoglobin decreased [Unknown]
  - Diarrhoea [Unknown]
  - Asthenia [Unknown]
  - Off label use [Unknown]
